FAERS Safety Report 21051670 (Version 1)
Quarter: 2022Q3

REPORT INFORMATION
  Report Type: Spontaneous
  Country: US (occurrence: US)
  Receive Date: 20220707
  Receipt Date: 20220707
  Transmission Date: 20221026
  Serious: Yes (Other)
  Sender: FDA-Public Use
  Company Number: US-SA-SAC20220704001260

PATIENT
  Age: 60 Year
  Sex: Male

DRUGS (2)
  1. ZANTAC [Suspect]
     Active Substance: RANITIDINE HYDROCHLORIDE
     Indication: Gastric ulcer
     Dosage: 150 MG, QD
     Dates: start: 200001, end: 201501
  2. ZANTAC [Suspect]
     Active Substance: RANITIDINE HYDROCHLORIDE
     Indication: Dyspepsia

REACTIONS (9)
  - Bone cancer [Unknown]
  - Lymphoma [Unknown]
  - Throat cancer [Unknown]
  - Pancreatic carcinoma stage IV [Unknown]
  - Shock hypoglycaemic [Unknown]
  - Pancreaticoduodenectomy [Unknown]
  - Gastric pacemaker insertion [Unknown]
  - Brain tumour operation [Unknown]
  - Brain neoplasm [Unknown]

NARRATIVE: CASE EVENT DATE: 20030101
